FAERS Safety Report 6398986-1 (Version None)
Quarter: 2009Q4

REPORT INFORMATION
  Report Type: 
  Country: None (occurrence: None)
  Receive Date: 20091013
  Receipt Date: 20091001
  Transmission Date: 20100525
  Serious: Yes (Other)
  Sender: FDA-Public Use
  Company Number: US-PFIZER INC-2009281045

PATIENT

DRUGS (2)
  1. GEODON [Suspect]
     Dosage: UNK
     Dates: start: 20060101
  2. TRAZODONE HYDROCHLORIDE [Concomitant]

REACTIONS (2)
  - PERITONEAL DIALYSIS COMPLICATION [None]
  - TREMOR [None]
